FAERS Safety Report 4754587-X (Version None)
Quarter: 2005Q3

REPORT INFORMATION
  Report Type: 
  Country: None (occurrence: None)
  Receive Date: 20050825
  Receipt Date: 20050812
  Transmission Date: 20060218
  Serious: Yes (Death)
  Sender: FDA-Public Use
  Company Number: 2005112258

PATIENT
  Age: 69 Year
  Sex: Female

DRUGS (8)
  1. VFEND [Suspect]
     Indication: FUNGAEMIA
     Dosage: 200 MG, INTRAVENOUS
     Route: 042
     Dates: start: 20050719, end: 20050810
  2. UNASYN [Suspect]
     Indication: ILL-DEFINED DISORDER
     Dosage: 1.5, INTRAVENOUS
     Route: 042
     Dates: start: 20050712, end: 20050810
  3. HABEKACIN (ARBEKACIN) [Suspect]
     Indication: STAPHYLOCOCCAL INFECTION
     Dosage: 60 MG, INTRAVENOUS
     Route: 042
     Dates: start: 20050713, end: 20050810
  4. FAMOTIDINE [Concomitant]
  5. AMINOPHYLLIN [Concomitant]
  6. MICAFUNGIN (MICAFUNGIN) [Concomitant]
  7. EPOGEN [Concomitant]
  8. HOKUNALIN (TULOBUTEROL HYDROCHLORIDE) [Concomitant]

REACTIONS (2)
  - HYPERCALCAEMIA [None]
  - LUNG NEOPLASM MALIGNANT [None]
